FAERS Safety Report 9867502 (Version 1)
Quarter: 2014Q1

REPORT INFORMATION
  Report Type: Spontaneous
  Country: US (occurrence: US)
  Receive Date: 20140204
  Receipt Date: 20140204
  Transmission Date: 20141002
  Serious: No
  Sender: FDA-Public Use
  Company Number: US-GALDERMA-US13000067

PATIENT
  Age: 17 Year
  Sex: Male
  Weight: 70 kg

DRUGS (4)
  1. EPIDUO (ADAPALENE, BENZOYL PEROXIDE) GEL 0.1% / 2.5% [Suspect]
     Route: 061
     Dates: start: 201210
  2. SOLODYN HCL [Suspect]
     Indication: ACNE
     Dates: start: 201210, end: 201212
  3. MULTIVITAMINS [Concomitant]
  4. ZANTAC [Concomitant]
     Route: 048

REACTIONS (1)
  - Acne [Unknown]
